FAERS Safety Report 17108068 (Version 2)
Quarter: 2019Q4

REPORT INFORMATION
  Report Type: Report from Study
  Country: BG (occurrence: BG)
  Receive Date: 20191203
  Receipt Date: 20191209
  Transmission Date: 20200122
  Serious: Yes (Hospitalization)
  Sender: FDA-Public Use
  Company Number: BG-CELGENEUS-BGR-20191004806

PATIENT
  Age: 27 Year
  Sex: Female
  Weight: 49.1 kg

DRUGS (3)
  1. EXJADE [Concomitant]
     Active Substance: DEFERASIROX
     Indication: IRON OVERLOAD
     Dosage: 1440 MILLIGRAM
     Route: 048
     Dates: start: 20181210
  2. LUSPATERCEPT. [Suspect]
     Active Substance: LUSPATERCEPT
     Indication: THALASSAEMIA BETA
     Route: 058
     Dates: start: 20170223
  3. LUSPATERCEPT. [Suspect]
     Active Substance: LUSPATERCEPT
     Route: 058
     Dates: end: 20190916

REACTIONS (1)
  - Extramedullary haemopoiesis [Recovered/Resolved]

NARRATIVE: CASE EVENT DATE: 20190927
